FAERS Safety Report 19065943 (Version 2)
Quarter: 2021Q2

REPORT INFORMATION
  Report Type: Report from Study
  Country: CN (occurrence: CN)
  Receive Date: 20210327
  Receipt Date: 20210421
  Transmission Date: 20210717
  Serious: Yes (Other)
  Sender: FDA-Public Use
  Company Number: NVSC2021CN069490

PATIENT
  Age: 46 Year
  Sex: Female
  Weight: 57 kg

DRUGS (6)
  1. ZYKADIA [Suspect]
     Active Substance: CERITINIB
     Indication: NON-SMALL CELL LUNG CANCER
     Dosage: 450 MG, QD
     Route: 048
     Dates: start: 20190302, end: 20210322
  2. BEVACIZUMAB. [Concomitant]
     Active Substance: BEVACIZUMAB
     Dosage: 100 ML (/ TIME / INJECTION, ONCE EVERY 21 DAYS)
     Route: 042
     Dates: start: 201908
  3. BEVACIZUMAB. [Concomitant]
     Active Substance: BEVACIZUMAB
     Dosage: 100 ML ( / TIME / INJECTION, ONCE EVERY 30 DAYS)
     Route: 042
     Dates: end: 202003
  4. BEVACIZUMAB. [Concomitant]
     Active Substance: BEVACIZUMAB
     Indication: METASTASIS
     Dosage: UNK (1 DOSE WAS INJECTED ABOUT 30 DAYS)
     Route: 042
  5. ZYKADIA [Suspect]
     Active Substance: CERITINIB
     Dosage: 450 MG, QD
     Route: 048
     Dates: start: 202010, end: 20210322
  6. BEVACIZUMAB. [Concomitant]
     Active Substance: BEVACIZUMAB
     Dosage: 100 ML / TIME / INJECTION, ONCE EVERY 30 DAYS)
     Route: 042
     Dates: start: 202008, end: 202101

REACTIONS (3)
  - Computerised tomogram abnormal [Not Recovered/Not Resolved]
  - Protein urine present [Unknown]
  - Renal injury [Unknown]

NARRATIVE: CASE EVENT DATE: 202010
